FAERS Safety Report 7945913-9 (Version None)
Quarter: 2011Q4

REPORT INFORMATION
  Report Type: 
  Country: None (occurrence: None)
  Receive Date: 20111129
  Receipt Date: 20111117
  Transmission Date: 20120403
  Serious: Yes (Hospitalization)
  Sender: FDA-Public Use
  Company Number: PHHY2011DK100856

PATIENT
  Sex: Female

DRUGS (1)
  1. EXELON [Suspect]
     Indication: DEMENTIA
     Dosage: 4.6 MG,/ 24 HOURS
     Route: 062
     Dates: start: 20111101

REACTIONS (5)
  - VOMITING [None]
  - GASTRIC ULCER [None]
  - GASTROINTESTINAL DISORDER [None]
  - PAIN [None]
  - HAEMATEMESIS [None]
